FAERS Safety Report 6666185-1 (Version None)
Quarter: 2010Q2

REPORT INFORMATION
  Report Type: 
  Country: None (occurrence: None)
  Receive Date: 20100402
  Receipt Date: 20100325
  Transmission Date: 20101027
  Serious: Yes (Hospitalization, Other)
  Sender: FDA-Public Use
  Company Number: US-AMGEN-QUU402092

PATIENT
  Sex: Female

DRUGS (2)
  1. ENBREL [Suspect]
     Indication: RHEUMATOID ARTHRITIS
     Route: 058
     Dates: start: 19990920
  2. MORPHINE [Concomitant]

REACTIONS (7)
  - FACIAL PALSY [None]
  - FALL [None]
  - FEMUR FRACTURE [None]
  - LUMBAR VERTEBRAL FRACTURE [None]
  - OVERDOSE [None]
  - RENAL FAILURE [None]
  - SEPSIS [None]
